FAERS Safety Report 8814338 (Version 1)
Quarter: 2012Q4

REPORT INFORMATION
  Report Type: 
  Country: TH (occurrence: TH)
  Receive Date: 20120928
  Receipt Date: 20120928
  Transmission Date: 20130627
  Serious: Yes (Death, Hospitalization, Other)
  Sender: FDA-Public Use
  Company Number: PHHY2009TH48874

PATIENT
  Sex: Female
  Weight: 46 kg

DRUGS (2)
  1. GLIVEC [Suspect]
     Indication: CHRONIC MYELOID LEUKAEMIA
     Dates: start: 20090521
  2. GLIVEC [Suspect]
     Dosage: 600mg daily
     Route: 048
     Dates: start: 20090617, end: 200909

REACTIONS (7)
  - Chronic myeloid leukaemia [Fatal]
  - Malignant neoplasm progression [Fatal]
  - Septic shock [Unknown]
  - White blood cells urine [Unknown]
  - Cardiac arrest [Unknown]
  - Pyrexia [Unknown]
  - Gingival bleeding [Unknown]
